FAERS Safety Report 20258477 (Version 1)
Quarter: 2021Q4

REPORT INFORMATION
  Report Type: Spontaneous
  Country: US (occurrence: None)
  Receive Date: 20211229
  Receipt Date: 20211229
  Transmission Date: 20220303
  Serious: No
  Sender: FDA-Public Use
  Company Number: None

PATIENT
  Sex: Female

DRUGS (1)
  1. STELARA [Suspect]
     Active Substance: USTEKINUMAB
     Indication: Crohn^s disease
     Dosage: OTHER FREQUENCY : EVERY 8 WEEKS;?
     Route: 058
     Dates: start: 202108

REACTIONS (7)
  - Abdominal pain [None]
  - Diarrhoea [None]
  - Fatigue [None]
  - Therapeutic product effect decreased [None]
  - Asthenia [None]
  - Somnolence [None]
  - Blood iron decreased [None]
